FAERS Safety Report 8878406 (Version 3)
Quarter: 2012Q4

REPORT INFORMATION
  Report Type: Report from Study
  Country: JP (occurrence: JP)
  Receive Date: 20121030
  Receipt Date: 20121210
  Transmission Date: 20130627
  Serious: Yes (Other)
  Sender: FDA-Public Use
  Company Number: JP-VERTEX PHARMACEUTICAL INC.-2012-023645

PATIENT
  Age: 63 Year
  Sex: Male

DRUGS (17)
  1. VX-950 (TELAPREVIR) [Suspect]
     Indication: CHRONIC HEPATITIS C
     Dosage: 1500 mg, qd
     Route: 048
     Dates: start: 20120903, end: 20120918
  2. VX-950 (TELAPREVIR) [Suspect]
     Dosage: 1000 mg, qd
     Route: 048
     Dates: start: 20120919, end: 20121009
  3. VX-950 (TELAPREVIR) [Suspect]
     Dosage: 1500 mg, qd
     Route: 048
     Dates: start: 20121010, end: 20121030
  4. VX-950 (TELAPREVIR) [Suspect]
     Dosage: 1000 UNK, UNK
     Route: 048
     Dates: start: 20121031, end: 20121127
  5. RIBAVIRIN [Suspect]
     Indication: CHRONIC HEPATITIS C
     Dosage: 600 mg, qd
     Route: 048
     Dates: start: 20120903, end: 20120909
  6. RIBAVIRIN [Suspect]
     Dosage: 800 mg, qd
     Route: 048
     Dates: start: 20120910, end: 20120925
  7. RIBAVIRIN [Suspect]
     Dosage: 400 mg, qd
     Route: 048
     Dates: start: 20120926, end: 20121030
  8. RIBAVIRIN [Suspect]
     Dosage: 300 mg, qd
     Route: 048
     Dates: start: 20121031, end: 20121106
  9. RIBAVIRIN [Suspect]
     Dosage: 200 mg, qd
     Route: 048
     Dates: start: 20121107
  10. PEGINTRON                          /01543001/ [Suspect]
     Indication: CHRONIC HEPATITIS C
     Dosage: 1 ?g/kg, qw
     Route: 058
     Dates: start: 20120903, end: 20120916
  11. PEGINTRON                          /01543001/ [Suspect]
     Dosage: 0.7 ?g/kg, qw
     Route: 058
     Dates: start: 20120919, end: 20121002
  12. PEGINTRON                          /01543001/ [Suspect]
     Dosage: 1 ?g/kg, qw
     Route: 058
     Dates: start: 20121003, end: 20121009
  13. PEGINTRON                          /01543001/ [Suspect]
     Dosage: 1.4 ?g/kg, qw
     Route: 058
     Dates: start: 20121010
  14. MYSLEE [Concomitant]
     Dosage: 10 mg, qd
     Route: 048
     Dates: start: 20121003, end: 20121113
  15. LOXOPROFEN [Concomitant]
     Dosage: 60 mg, qd
     Route: 048
     Dates: start: 20120903
  16. MUCOSTA [Concomitant]
     Dosage: 100 mg, qd
     Route: 048
     Dates: start: 20120903
  17. URSO                               /00465701/ [Concomitant]
     Dosage: 600 mg, qd
     Route: 048
     Dates: start: 20121107

REACTIONS (3)
  - Haemorrhagic diathesis [Not Recovered/Not Resolved]
  - Neutrophil percentage decreased [Not Recovered/Not Resolved]
  - Platelet count decreased [Not Recovered/Not Resolved]
